FAERS Safety Report 20634930 (Version 1)
Quarter: 2022Q1

REPORT INFORMATION
  Report Type: Other
  Country: US (occurrence: US)
  Receive Date: 20220325
  Receipt Date: 20220325
  Transmission Date: 20220424
  Serious: Yes (Other)
  Sender: FDA-Public Use
  Company Number: US-TOLMAR, INC.-22US033597

PATIENT
  Age: 11 Year
  Sex: Male

DRUGS (3)
  1. FENSOLVI [Suspect]
     Active Substance: LEUPROLIDE ACETATE
     Indication: Precocious puberty
     Dosage: 45 MILLIGRAM, Q 6 MONTH
     Route: 058
     Dates: start: 202111
  2. INSULIN NOS [Concomitant]
     Active Substance: INSULIN NOS
     Indication: Type 1 diabetes mellitus
     Route: 058
  3. ALLERGY MEDICATION [Concomitant]
     Active Substance: DIPHENHYDRAMINE HYDROCHLORIDE
     Indication: Seasonal allergy
     Route: 048

REACTIONS (7)
  - Suicide attempt [Unknown]
  - Oral pruritus [Recovering/Resolving]
  - Emotional disorder [Unknown]
  - Dyskinesia [Not Recovered/Not Resolved]
  - Crying [Unknown]
  - Anger [Unknown]
  - Aggression [Unknown]

NARRATIVE: CASE EVENT DATE: 20220101
